FAERS Safety Report 21560794 (Version 1)
Quarter: 2022Q4

REPORT INFORMATION
  Report Type: Spontaneous
  Country: SE (occurrence: SE)
  Receive Date: 20221107
  Receipt Date: 20221107
  Transmission Date: 20230113
  Serious: Yes (Other)
  Sender: FDA-Public Use
  Company Number: None

PATIENT
  Age: 73 Year
  Sex: Male
  Weight: 87 kg

DRUGS (30)
  1. TEPOTINIB [Suspect]
     Active Substance: TEPOTINIB
     Indication: Lung neoplasm malignant
     Route: 048
     Dates: start: 20220823
  2. TOUJEO [Concomitant]
     Active Substance: INSULIN GLARGINE
     Indication: Product used for unknown indication
     Dosage: 43 AT 20:00 O^CLOCK UNTIL FURTHER NOTICE
     Dates: start: 20220720
  3. DAPAGLIFLOZIN [Concomitant]
     Active Substance: DAPAGLIFLOZIN
     Indication: Product used for unknown indication
     Dosage: 1
     Dates: start: 20220421
  4. CLOBETASOL [Concomitant]
     Active Substance: CLOBETASOL
     Indication: Product used for unknown indication
     Dates: start: 20220405
  5. UREA [Concomitant]
     Active Substance: UREA
     Indication: Product used for unknown indication
     Dosage: 1 WHEN NEEDED UNTIL FURTHER NOTICE
     Dates: start: 20220405
  6. INSULIN HUMAN [Concomitant]
     Active Substance: INSULIN HUMAN
     Indication: Product used for unknown indication
     Dosage: 31 AT 08 O^CLOCK UNTIL FURTHER NOTICE, FLEXPEN
     Dates: start: 20220811
  7. ENTRESTO [Concomitant]
     Active Substance: SACUBITRIL\VALSARTAN
     Indication: Product used for unknown indication
     Dosage: 2
     Dates: start: 20220908
  8. DESLORATADINE [Concomitant]
     Active Substance: DESLORATADINE
     Indication: Product used for unknown indication
     Dosage: 1
     Dates: start: 20220124
  9. OXYCODONE DEPOT ORION [Concomitant]
     Indication: Product used for unknown indication
     Dosage: 2 PIECES 3 TIMES PER DAY UNTIL FURTHER NOTICE
     Dates: start: 20220309
  10. BISOPROLOL [Concomitant]
     Active Substance: BISOPROLOL
     Indication: Product used for unknown indication
     Dosage: 2
     Dates: start: 20190624
  11. ALLOPURINOL [Concomitant]
     Active Substance: ALLOPURINOL
     Indication: Product used for unknown indication
     Dosage: 2
     Dates: start: 20220712
  12. OXAZEPAM [Concomitant]
     Active Substance: OXAZEPAM
     Indication: Product used for unknown indication
     Dosage: 0,5-1 WHEN NEEDED MAX 2 PER DAY
     Dates: start: 20210506
  13. ESOMEPRAZOLE [Concomitant]
     Active Substance: ESOMEPRAZOLE
     Indication: Product used for unknown indication
     Dosage: 1
     Dates: start: 20211110
  14. EPLERENON STADA [Concomitant]
     Indication: Product used for unknown indication
     Dosage: 1
     Dates: start: 20190924
  15. NITROLINGUAL [Concomitant]
     Active Substance: NITROGLYCERIN
     Indication: Product used for unknown indication
     Dosage: 1-2 WHEN NEEDED
     Dates: start: 20171010
  16. LINAGLIPTIN [Concomitant]
     Active Substance: LINAGLIPTIN
     Indication: Product used for unknown indication
     Dosage: 1
     Dates: start: 20220623
  17. BETNOVAT [BETAMETHASONE] [Concomitant]
     Indication: Product used for unknown indication
     Dates: start: 20220302
  18. ATORVASTATIN [Concomitant]
     Active Substance: ATORVASTATIN
     Indication: Product used for unknown indication
     Dosage: 1
     Dates: start: 20190517, end: 20221018
  19. FUROSEMIDE [Concomitant]
     Active Substance: FUROSEMIDE
     Indication: Product used for unknown indication
     Dosage: 3 AT 08 O`CLOCK + 3 AT 12 O`CLOCK UNTIL FURTHER NOTICE
     Dates: start: 20220822
  20. FUROSEMIDE [Concomitant]
     Active Substance: FUROSEMIDE
     Dosage: 1X1VBTV
     Dates: start: 20180121
  21. FUROSEMIDE [Concomitant]
     Active Substance: FUROSEMIDE
     Dates: start: 20220411
  22. ELIQUIS [Concomitant]
     Active Substance: APIXABAN
     Indication: Product used for unknown indication
     Dosage: 1 PIECE 2 TIMES PER DAY UNTIL FURTHER NOTICE
     Dates: start: 20180427
  23. COLCHICINE [Concomitant]
     Active Substance: COLCHICINE
     Indication: Product used for unknown indication
     Dates: start: 20211230
  24. METFORMIN HYDROCHLORIDE [Concomitant]
     Active Substance: METFORMIN HYDROCHLORIDE
     Indication: Product used for unknown indication
     Dosage: 1 TABLET AT BREAKFAST AND DINNER
     Dates: start: 20201014
  25. ELOCON [Concomitant]
     Active Substance: MOMETASONE FUROATE
     Indication: Product used for unknown indication
     Dosage: 1 AT 22 O`CLOCK
     Dates: start: 20220124
  26. MIRTAZAPINE [Concomitant]
     Active Substance: MIRTAZAPINE
     Indication: Product used for unknown indication
     Dosage: 1 AT 20 O^CLOCK UNTIL FURTHER NOTICE
     Dates: start: 20220929, end: 20221018
  27. MIRTAZAPINE [Concomitant]
     Active Substance: MIRTAZAPINE
     Dosage: 1KL20TV
     Dates: start: 20220929, end: 20221018
  28. PREDNISOLONE [Concomitant]
     Active Substance: PREDNISOLONE
     Indication: Product used for unknown indication
     Dosage: 1
     Dates: start: 20220114
  29. OXYCODONE HYDROCHLORIDE [Concomitant]
     Active Substance: OXYCODONE HYDROCHLORIDE
     Indication: Product used for unknown indication
     Dosage: 3
     Dates: start: 20220105
  30. METOLAZON ABCUR [Concomitant]
     Indication: Product used for unknown indication
     Dates: start: 20220411

REACTIONS (3)
  - Back pain [Not Recovered/Not Resolved]
  - Abdominal discomfort [Not Recovered/Not Resolved]
  - Dyspepsia [Not Recovered/Not Resolved]

NARRATIVE: CASE EVENT DATE: 20221012
